FAERS Safety Report 5130854-5 (Version None)
Quarter: 2006Q4

REPORT INFORMATION
  Report Type: 
  Country: None (occurrence: None)
  Receive Date: 20061013
  Receipt Date: 20061009
  Transmission Date: 20070319
  Serious: Yes (Death, Hospitalization)
  Sender: FDA-Public Use
  Company Number: 163-20785-06070806

PATIENT
  Age: 76 Year
  Sex: Male

DRUGS (8)
  1. THALOMID [Suspect]
     Indication: MULTIPLE MYELOMA
     Dosage: 400 MG, DAILY, ORAL
     Route: 048
     Dates: start: 20060530, end: 20060101
  2. DECADRON [Concomitant]
  3. COUMADIN [Concomitant]
  4. VELCADE [Concomitant]
  5. ALLOPURINOL [Concomitant]
  6. RENAGEL [Concomitant]
  7. PROTONIX [Concomitant]
  8. TESSALON [Concomitant]

REACTIONS (4)
  - DISEASE PROGRESSION [None]
  - PULMONARY HYPERTENSION [None]
  - RENAL FAILURE ACUTE [None]
  - THERAPY NON-RESPONDER [None]
